FAERS Safety Report 7384696-0 (Version None)
Quarter: 2011Q1

REPORT INFORMATION
  Report Type: 
  Country: None (occurrence: None)
  Receive Date: 20110330
  Receipt Date: 20110323
  Transmission Date: 20110831
  Serious: Yes (Hospitalization)
  Sender: FDA-Public Use
  Company Number: PHHY2011JP17654

PATIENT
  Sex: Male
  Weight: 72 kg

DRUGS (5)
  1. ZOMETA [Suspect]
     Indication: METASTASES TO BONE
     Dosage: 4 MG, EVERY FOUR WEEKS
     Route: 041
     Dates: start: 20090728, end: 20110215
  2. CASODEX [Concomitant]
     Indication: PROSTATE CANCER
     Dosage: UNK
     Route: 048
     Dates: end: 20090727
  3. ZOLADEX [Concomitant]
     Indication: PROSTATE CANCER
     Dosage: 10.8 MG, UNK
     Route: 058
     Dates: start: 20080226
  4. ODYNE [Concomitant]
     Indication: PROSTATE CANCER
     Dosage: 375 MG, UNK
     Route: 048
     Dates: start: 20090728, end: 20101214
  5. ESTRACYT [Suspect]
     Indication: PROSTATE CANCER
     Dosage: 313.4 MG, UNK
     Route: 048
     Dates: start: 20110111

REACTIONS (3)
  - OSTEOMYELITIS [None]
  - PROSTATIC SPECIFIC ANTIGEN INCREASED [None]
  - BONE DISORDER [None]
